FAERS Safety Report 6622071-4 (Version None)
Quarter: 2010Q1

REPORT INFORMATION
  Report Type: 
  Country: None (occurrence: None)
  Receive Date: 20100223
  Receipt Date: 20100108
  Transmission Date: 20100710
  Serious: No
  Sender: FDA-Public Use
  Company Number: 8053756

PATIENT
  Sex: Female
  Weight: 54.4 kg

DRUGS (1)
  1. CIMZIA [Suspect]
     Indication: CROHN'S DISEASE
     Dosage: (200 2X/MONTH SUBCUTANEOUS)
     Route: 058
     Dates: start: 20090108

REACTIONS (2)
  - ARTHRALGIA [None]
  - FREQUENT BOWEL MOVEMENTS [None]
